FAERS Safety Report 7088110-4 (Version None)
Quarter: 2010Q4

REPORT INFORMATION
  Report Type: 
  Country: None (occurrence: None)
  Receive Date: 20101108
  Receipt Date: 20101104
  Transmission Date: 20110411
  Serious: Yes (Disabling, Other)
  Sender: FDA-Public Use
  Company Number: US-ASTRAZENECA-2010SE27475

PATIENT
  Age: 62 Year
  Sex: Female

DRUGS (1)
  1. ROSUVASTATIN [Suspect]
     Indication: HYPERLIPIDAEMIA
     Route: 048

REACTIONS (4)
  - AMNESIA [None]
  - AMYOTROPHIC LATERAL SCLEROSIS [None]
  - CHEST PAIN [None]
  - WEIGHT DECREASED [None]
